FAERS Safety Report 14211230 (Version 2)
Quarter: 2017Q4

REPORT INFORMATION
  Report Type: Spontaneous
  Country: US (occurrence: US)
  Receive Date: 20171121
  Receipt Date: 20171221
  Transmission Date: 20180321
  Serious: Yes (Other)
  Sender: FDA-Public Use
  Company Number: US-PFIZER INC-2017495192

PATIENT
  Age: 24 Year
  Sex: Male

DRUGS (2)
  1. SOMAVERT [Suspect]
     Active Substance: PEGVISOMANT
     Indication: ACROMEGALY
     Dosage: 20 MG, DAILY
     Dates: start: 20160530
  2. SIGNIFOR [Suspect]
     Active Substance: PASIREOTIDE
     Dosage: UNK
     Dates: start: 201703

REACTIONS (4)
  - Visual impairment [Unknown]
  - Visual field defect [Unknown]
  - Neoplasm progression [Unknown]
  - Vision blurred [Unknown]
